FAERS Safety Report 7224589-2 (Version None)
Quarter: 2011Q1

REPORT INFORMATION
  Report Type: 
  Country: None (occurrence: None)
  Receive Date: 20110103
  Receipt Date: 20101215
  Transmission Date: 20110831
  Serious: Yes (Death, Hospitalization)
  Sender: FDA-Public Use
  Company Number: 2010005574

PATIENT
  Age: 46 Year
  Sex: Female

DRUGS (19)
  1. NEURONTIN [Concomitant]
  2. ATIVAN [Concomitant]
  3. BUPROPION HCL [Concomitant]
  4. COLACE (DOCUSATE SODIUM) [Concomitant]
  5. KETAMINE HCL [Concomitant]
  6. METHADONE HCL [Concomitant]
  7. SINGULAIR [Concomitant]
  8. ZOFRAN [Concomitant]
  9. ERLOTINIB (ERLOTINIB) (TABLET) (ERLOTINIB) [Suspect]
     Indication: PANCREATIC CARCINOMA METASTATIC
     Dosage: 150 MG, QD, ORAL
     Route: 048
     Dates: start: 20101008, end: 20101130
  10. AMBIEN [Concomitant]
  11. NICODERM [Concomitant]
  12. GEMCITABINE [Suspect]
     Indication: PANCREATIC CARCINOMA METASTATIC
     Dosage: 500 MG/M2, QW, INTRAVENOUS
     Route: 042
     Dates: start: 20101007, end: 20101110
  13. FRAGMIN [Concomitant]
  14. DURAGESIC-100 [Concomitant]
  15. IMODIUM [Concomitant]
  16. DECAADRON (DEXAMTHASONE) [Concomitant]
  17. CLARITIN [Concomitant]
  18. COMPAZINE [Concomitant]
  19. LEVOTHYROXINE SODIUM [Concomitant]

REACTIONS (13)
  - MITRAL VALVE PROLAPSE [None]
  - PAIN [None]
  - TRICUSPID VALVE INCOMPETENCE [None]
  - NEOPLASM MALIGNANT [None]
  - TOXIC ENCEPHALOPATHY [None]
  - DEHYDRATION [None]
  - LETHARGY [None]
  - BLOOD LACTATE DEHYDROGENASE INCREASED [None]
  - CONFUSIONAL STATE [None]
  - PLATELET COUNT DECREASED [None]
  - SOMNOLENCE [None]
  - ACUTE MYOCARDIAL INFARCTION [None]
  - MENTAL STATUS CHANGES [None]
